FAERS Safety Report 8234243-6 (Version None)
Quarter: 2012Q1

REPORT INFORMATION
  Report Type: 
  Country: None (occurrence: None)
  Receive Date: 20120326
  Receipt Date: 20120315
  Transmission Date: 20120608
  Serious: Yes (Hospitalization)
  Sender: FDA-Public Use
  Company Number: IT-JNJFOC-20120214037

PATIENT
  Sex: Male
  Weight: 176 kg

DRUGS (13)
  1. ABIRATERONE ACETATE [Suspect]
     Indication: PROSTATE CANCER METASTATIC
     Route: 048
     Dates: start: 20120131, end: 20120228
  2. ABIRATERONE ACETATE [Suspect]
     Route: 048
  3. SELEDIE [Concomitant]
     Indication: THROMBOSIS
     Dosage: 0.8 UNSPECIFIED UNITS
     Route: 058
     Dates: start: 20111219
  4. CALCIUM SANDOZ [Concomitant]
     Indication: HYPOCALCAEMIA
     Route: 048
     Dates: start: 20080606
  5. IBRUPROFEN [Concomitant]
     Indication: PAIN
     Route: 048
     Dates: start: 20111205
  6. HORMONE THERAPY [Concomitant]
     Indication: HORMONE THERAPY
     Route: 065
     Dates: start: 20080101
  7. ACETAMINOPHEN [Concomitant]
     Indication: PAIN
     Dosage: 1000 UNSPECIFIED UNITS
     Route: 048
     Dates: start: 20111205
  8. HYDROMORPHONE HCL [Concomitant]
     Indication: PAIN
     Route: 048
     Dates: start: 20111205
  9. LANSOPRAZOLE [Concomitant]
     Indication: GASTROINTESTINAL DISORDER THERAPY
     Route: 048
     Dates: start: 20110503
  10. LASIX [Concomitant]
     Indication: PRODUCT USED FOR UNKNOWN INDICATION
     Route: 048
     Dates: start: 20120214
  11. DIBASE [Concomitant]
     Indication: PROPHYLAXIS
     Route: 048
     Dates: start: 20110518
  12. BISOPROLOL FUMARATE [Concomitant]
     Indication: HYPERTENSION
     Route: 048
     Dates: start: 20091117
  13. PREDNISONE TAB [Concomitant]
     Indication: PRODUCT USED FOR UNKNOWN INDICATION
     Route: 048
     Dates: start: 20110607

REACTIONS (6)
  - DEEP VEIN THROMBOSIS [None]
  - DYSPNOEA [None]
  - STREPTOCOCCUS TEST POSITIVE [None]
  - PULMONARY EMBOLISM [None]
  - PLEURAL EFFUSION [None]
  - ESCHERICHIA TEST POSITIVE [None]
